FAERS Safety Report 12256787 (Version 1)
Quarter: 2016Q2

REPORT INFORMATION
  Report Type: Spontaneous
  Country: US (occurrence: US)
  Receive Date: 20160412
  Receipt Date: 20160412
  Transmission Date: 20160815
  Serious: No
  Sender: FDA-Public Use
  Company Number: US-GLAXOSMITHKLINE-US2016047781

PATIENT
  Sex: Female

DRUGS (1)
  1. BENEFIBER [Suspect]
     Active Substance: STARCH, WHEAT
     Indication: DIARRHOEA
     Dosage: UNK

REACTIONS (2)
  - Product use issue [Unknown]
  - Diarrhoea [Unknown]
